FAERS Safety Report 24880401 (Version 1)
Quarter: 2025Q1

REPORT INFORMATION
  Report Type: Spontaneous
  Country: IT (occurrence: IT)
  Receive Date: 20250123
  Receipt Date: 20250123
  Transmission Date: 20250409
  Serious: Yes (Other)
  Sender: BAYER HEALTHCARE PHARMACEUTICALS INC.
  Company Number: IT-BAYER-2024A108625

PATIENT
  Age: 66 Year
  Sex: Male

DRUGS (1)
  1. GADOBUTROL [Suspect]
     Active Substance: GADOBUTROL
     Indication: Magnetic resonance imaging
     Dates: start: 20231219

REACTIONS (7)
  - Nephrogenic systemic fibrosis [None]
  - Fatigue [None]
  - Dyspnoea [None]
  - Pain in extremity [None]
  - Injection site pain [None]
  - Tendonitis [None]
  - Renal pain [None]

NARRATIVE: CASE EVENT DATE: 20240101
